FAERS Safety Report 6773435-X (Version None)
Quarter: 2010Q2

REPORT INFORMATION
  Report Type: 
  Country: None (occurrence: None)
  Receive Date: 20100616
  Receipt Date: 20100412
  Transmission Date: 20101027
  Serious: No
  Sender: FDA-Public Use
  Company Number: US-ABBOTT-10P-163-0639011-00

PATIENT
  Sex: Female
  Weight: 81.72 kg

DRUGS (2)
  1. TRILIPIX [Suspect]
     Indication: BLOOD CHOLESTEROL INCREASED
     Dates: start: 20100317, end: 20100401
  2. AMBODICME [Concomitant]
     Indication: HYPERTENSION

REACTIONS (4)
  - INSOMNIA [None]
  - MYALGIA [None]
  - NERVOUSNESS [None]
  - SKIN DISORDER [None]
